FAERS Safety Report 9217941 (Version 2)
Quarter: 2013Q2

REPORT INFORMATION
  Report Type: Other
  Country: BR (occurrence: BR)
  Receive Date: 20130408
  Receipt Date: 20130510
  Transmission Date: 20140414
  Serious: Yes (Other)
  Sender: FDA-Public Use
  Company Number: PHHY2013BR033398

PATIENT
  Sex: Female

DRUGS (3)
  1. PAMELOR [Suspect]
     Indication: PARKINSON^S DISEASE
     Dosage: 1 DF, DAILY
     Route: 048
  2. PAMELOR [Suspect]
     Indication: OFF LABEL USE
  3. COMTAN [Suspect]
     Indication: PARKINSON^S DISEASE

REACTIONS (2)
  - No adverse event [Unknown]
  - Off label use [None]
